FAERS Safety Report 8473801-0 (Version None)
Quarter: 2012Q2

REPORT INFORMATION
  Report Type: 
  Country: None (occurrence: None)
  Receive Date: 20120628
  Receipt Date: 20120216
  Transmission Date: 20120825
  Serious: Yes (Hospitalization, Other)
  Sender: FDA-Public Use
  Company Number: US-MYLANLABS-2011S1023896

PATIENT
  Age: 41 Year
  Sex: Female
  Weight: 89.8 kg

DRUGS (8)
  1. ADVAIR DISKUS 100/50 [Concomitant]
     Dates: start: 20111103, end: 20111130
  2. METFORMIN HCL [Concomitant]
     Dates: start: 20111103, end: 20111130
  3. RISPERIDONE [Concomitant]
     Dates: start: 20111103, end: 20111130
  4. CLOZAPINE [Suspect]
     Indication: SCHIZOPHRENIA
     Route: 048
     Dates: start: 20111103, end: 20111114
  5. BUSPIRONE HCL [Concomitant]
     Dates: start: 20111103, end: 20111130
  6. PIOGLITAZONE [Concomitant]
     Dates: start: 20111104, end: 20111130
  7. FENOFIBRATE [Concomitant]
     Dates: start: 20111104, end: 20111130
  8. LOSARTAN POTASSIUM [Concomitant]
     Dates: start: 20111103, end: 20111130

REACTIONS (2)
  - LEUKOPENIA [None]
  - GRANULOCYTOPENIA [None]
